FAERS Safety Report 7788510-0 (Version None)
Quarter: 2011Q3

REPORT INFORMATION
  Report Type: 
  Country: None (occurrence: None)
  Receive Date: 20110930
  Receipt Date: 20110928
  Transmission Date: 20111222
  Serious: Yes (Death, Hospitalization)
  Sender: FDA-Public Use
  Company Number: PHHY2011NZ85495

PATIENT
  Sex: Female

DRUGS (1)
  1. CLOZAPINE [Suspect]
     Indication: SCHIZOPHRENIA
     Dates: start: 19970407

REACTIONS (4)
  - CARDIAC DISORDER [None]
  - CIRCULATORY COLLAPSE [None]
  - ISCHAEMIA [None]
  - ELECTROCARDIOGRAM QT PROLONGED [None]
